FAERS Safety Report 8230538-0 (Version None)
Quarter: 2012Q1

REPORT INFORMATION
  Report Type: 
  Country: None (occurrence: None)
  Receive Date: 20120322
  Receipt Date: 20120322
  Transmission Date: 20120608
  Serious: Yes (Hospitalization)
  Sender: FDA-Public Use
  Company Number: None

PATIENT
  Sex: Male
  Weight: 73.4 kg

DRUGS (10)
  1. MICARDIS [Concomitant]
  2. DILTIAZEM HCL [Concomitant]
  3. OXYCODONE HCL [Concomitant]
  4. COLACE [Concomitant]
  5. VITAMIN B-12 [Concomitant]
  6. DEXAMETHASONE AND PEPCID [Concomitant]
  7. ALIMTA [Suspect]
     Indication: SARCOMA
     Dosage: ALIMTA 915MG IV-D1/D15 C2D1
     Route: 042
     Dates: start: 20120229
  8. TAXOTERE [Suspect]
     Indication: SARCOMA
     Dosage: TAXOTERE 73MG IV-D1/D15 C2D1
     Route: 042
     Dates: start: 20120229
  9. LIPITOR [Concomitant]
  10. FOLIC ACID [Concomitant]

REACTIONS (4)
  - WHITE BLOOD CELL COUNT INCREASED [None]
  - HAEMOPTYSIS [None]
  - OXYGEN SATURATION DECREASED [None]
  - PRODUCTIVE COUGH [None]
